FAERS Safety Report 8640326 (Version 2)
Quarter: 2013Q2

REPORT INFORMATION
  Report Type: Report from Study
  Country: US (occurrence: US)
  Receive Date: 20120628
  Receipt Date: 20130627
  Transmission Date: 20140414
  Serious: Yes (Other)
  Sender: FDA-Public Use
  Company Number: US-MYLANLABS-2012S1006247

PATIENT
  Age: 30 Year
  Sex: Male

DRUGS (10)
  1. CLOZAPINE TABLETS [Suspect]
     Indication: SCHIZOPHRENIA
     Dates: start: 20120603
  2. CLOZAPINE TABLETS [Suspect]
     Indication: SCHIZOPHRENIA
     Dates: start: 20110411, end: 20120601
  3. ZOLOFT [Concomitant]
  4. DEPAKOTE [Concomitant]
  5. LITHIUM [Concomitant]
  6. CRESTOR [Concomitant]
  7. IRON [Concomitant]
  8. METFORMIN [Concomitant]
  9. ALBUTEROL [Concomitant]
  10. PREVACID [Concomitant]

REACTIONS (2)
  - Granulocytopenia [Recovered/Resolved]
  - Leukopenia [Recovered/Resolved]
